FAERS Safety Report 9383897 (Version 4)
Quarter: 2013Q4

REPORT INFORMATION
  Report Type: Report from Study
  Country: CA (occurrence: CA)
  Receive Date: 20130705
  Receipt Date: 20131213
  Transmission Date: 20140711
  Serious: Yes (Other)
  Sender: FDA-Public Use
  Company Number: CA-ROCHE-1245075

PATIENT
  Age: 53 Year
  Sex: Male
  Weight: 102 kg

DRUGS (6)
  1. ACTEMRA [Suspect]
     Indication: RHEUMATOID ARTHRITIS
     Route: 042
     Dates: start: 20130307
  2. ACTEMRA [Suspect]
     Route: 042
     Dates: start: 20130716
  3. LEFLUNOMIDE [Concomitant]
  4. CALTRATE [Concomitant]
  5. FOLIC ACID [Concomitant]
  6. METHOTREXATE [Concomitant]

REACTIONS (4)
  - Ankle fracture [Not Recovered/Not Resolved]
  - Fall [Unknown]
  - Localised infection [Not Recovered/Not Resolved]
  - Blood pressure increased [Unknown]
